FAERS Safety Report 11555266 (Version 5)
Quarter: 2018Q2

REPORT INFORMATION
  Report Type: Report from Study
  Country: KR (occurrence: KR)
  Receive Date: 20150925
  Receipt Date: 20180531
  Transmission Date: 20180711
  Serious: Yes (Hospitalization)
  Sender: FDA-Public Use
  Company Number: KR-EISAI MEDICAL RESEARCH-EC-2015-010689

PATIENT
  Age: 69 Year
  Sex: Female
  Weight: 58.2 kg

DRUGS (15)
  1. ZOMEBON [Concomitant]
  2. TATHION [Concomitant]
     Active Substance: GLUTATHIONE
  3. MEGACE [Concomitant]
     Active Substance: MEGESTROL ACETATE
  4. NYSTATIN. [Concomitant]
     Active Substance: NYSTATIN
  5. PENNEL [Concomitant]
  6. HALAVEN [Suspect]
     Active Substance: ERIBULIN MESYLATE
     Indication: BREAST CANCER METASTATIC
     Route: 041
     Dates: start: 20150831, end: 20150831
  7. LANSTON [Concomitant]
     Active Substance: LANSOPRAZOLE
  8. GRASIN [Concomitant]
  9. DICAMAX [Concomitant]
  10. NESP [Concomitant]
     Active Substance: DARBEPOETIN ALFA
  11. TATHION [Concomitant]
     Active Substance: GLUTATHIONE
  12. HALAVEN [Suspect]
     Active Substance: ERIBULIN MESYLATE
     Route: 041
     Dates: start: 20150911, end: 20151125
  13. ULTRACET [Concomitant]
     Active Substance: ACETAMINOPHEN\TRAMADOL HYDROCHLORIDE
  14. AUGMENTIN [Concomitant]
     Active Substance: AMOXICILLIN\CLAVULANATE POTASSIUM
  15. URSA [Concomitant]
     Active Substance: URSODIOL

REACTIONS (3)
  - Asthenia [Recovered/Resolved]
  - Neutropenia [Recovered/Resolved]
  - Nephritis [Recovered/Resolved]

NARRATIVE: CASE EVENT DATE: 20150907
